FAERS Safety Report 9503561 (Version 1)
Quarter: 2013Q3

REPORT INFORMATION
  Report Type: Spontaneous
  Country: US (occurrence: US)
  Receive Date: 20130906
  Receipt Date: 20130906
  Transmission Date: 20140515
  Serious: No
  Sender: FDA-Public Use
  Company Number: US-009507513-1309USA001699

PATIENT
  Sex: Female

DRUGS (2)
  1. MIRALAX [Suspect]
     Indication: PRODUCT USED FOR UNKNOWN INDICATION
     Dosage: 17 G, ONCE
     Route: 048
     Dates: start: 20130824
  2. MIRALAX [Suspect]
     Indication: MEDICAL OBSERVATION
     Dosage: 8.5 G, ONCE
     Route: 048
     Dates: start: 20130828

REACTIONS (3)
  - Diarrhoea [Recovered/Resolved]
  - Underdose [Unknown]
  - Drug effect decreased [Unknown]
